FAERS Safety Report 4880769-2 (Version None)
Quarter: 2006Q1

REPORT INFORMATION
  Report Type: 
  Country: None (occurrence: None)
  Receive Date: 20060111
  Receipt Date: 20051209
  Transmission Date: 20060701
  Serious: No
  Sender: FDA-Public Use
  Company Number: 2005S1000024

PATIENT
  Age: 69 Year
  Weight: 99 kg

DRUGS (31)
  1. CUBICIN [Suspect]
     Indication: DEVICE RELATED INFECTION
     Dosage: 500 MG;Q24H;IV
     Route: 042
     Dates: start: 20050215, end: 20050216
  2. CUBICIN [Suspect]
     Indication: STAPHYLOCOCCAL INFECTION
     Dosage: 500 MG;Q24H;IV
     Route: 042
     Dates: start: 20050215, end: 20050216
  3. METFORMIN [Concomitant]
  4. AVAPRO [Concomitant]
  5. DOCUSATE [Concomitant]
  6. GLIBENCLAMIDE [Concomitant]
  7. COLESTIPOL HCL [Concomitant]
  8. HUMULIN N [Concomitant]
  9. PANTOPRAZOLE [Concomitant]
  10. WARFARIN SODIUM [Concomitant]
  11. HYDROMORPHONE HCL [Concomitant]
  12. GLUCOVANCE [Concomitant]
  13. HUMULIN R [Concomitant]
  14. NEURONTIN [Concomitant]
  15. FLEXERIL [Concomitant]
  16. LORTAB [Concomitant]
  17. POTASSIUM [Concomitant]
  18. ACIPHEX [Concomitant]
  19. ANTIVERT [Concomitant]
  20. PARAFON FORTE [Concomitant]
  21. SYNERCID [Concomitant]
  22. VANCOMYCIN [Concomitant]
  23. CEFEPIME [Concomitant]
  24. RIFAMPIN [Concomitant]
  25. METHYLENE BLUE [Concomitant]
  26. NEBCIN [Concomitant]
  27. PROPOFOL [Concomitant]
  28. FENTANYL CITRATE [Concomitant]
  29. MORPHINE SULFATE [Concomitant]
  30. BACITRACIN [Concomitant]
  31. SEVOFLURANE [Concomitant]

REACTIONS (1)
  - BLOOD CREATININE INCREASED [None]
